FAERS Safety Report 10260261 (Version 1)
Quarter: 2014Q2

REPORT INFORMATION
  Report Type: Spontaneous
  Country: US (occurrence: US)
  Receive Date: 20140625
  Receipt Date: 20140625
  Transmission Date: 20141212
  Serious: No
  Sender: FDA-Public Use
  Company Number: US-SA-2014SA047775

PATIENT
  Age: 33 Year
  Sex: Male

DRUGS (5)
  1. AUBAGIO [Suspect]
     Indication: MULTIPLE SCLEROSIS
     Route: 048
     Dates: start: 20140408
  2. LISINOPRIL [Concomitant]
  3. ASPIRIN [Concomitant]
  4. OLOPATADINE HYDROCHLORIDE [Concomitant]
  5. ZADITOR [Concomitant]

REACTIONS (1)
  - Pain in extremity [Unknown]
